FAERS Safety Report 21935913 (Version 1)
Quarter: 2023Q1

REPORT INFORMATION
  Report Type: Spontaneous
  Country: US (occurrence: US)
  Receive Date: 20230201
  Receipt Date: 20230201
  Transmission Date: 20230418
  Serious: Yes (Other)
  Sender: FDA-Public Use
  Company Number: US-BIOGEN-2022BI01108978

PATIENT
  Sex: Female

DRUGS (1)
  1. VUMERITY [Suspect]
     Active Substance: DIROXIMEL FUMARATE
     Indication: Multiple sclerosis
     Route: 050
     Dates: start: 20210511

REACTIONS (12)
  - Blindness transient [Unknown]
  - Oesophageal candidiasis [Unknown]
  - Visual impairment [Not Recovered/Not Resolved]
  - Intentional product misuse [Unknown]
  - Dysphagia [Not Recovered/Not Resolved]
  - Balance disorder [Not Recovered/Not Resolved]
  - Tremor [Unknown]
  - Gastrointestinal disorder [Not Recovered/Not Resolved]
  - Polyp [Unknown]
  - Diverticulitis [Unknown]
  - Hernia [Unknown]
  - Oesophageal ulcer [Unknown]
